FAERS Safety Report 17370023 (Version 4)
Quarter: 2020Q1

REPORT INFORMATION
  Report Type: Spontaneous
  Country: JP (occurrence: JP)
  Receive Date: 20200205
  Receipt Date: 20200313
  Transmission Date: 20200409
  Serious: Yes (Life-Threatening, Hospitalization, Other)
  Sender: FDA-Public Use
  Company Number: JP-TEVA-2020-JP-1181612

PATIENT
  Age: 79 Year
  Sex: Female
  Weight: 52.5 kg

DRUGS (6)
  1. LYRICA [Concomitant]
     Active Substance: PREGABALIN
     Dates: end: 20200203
  2. COMTAN [Concomitant]
     Active Substance: ENTACAPONE
  3. PERMAX [Concomitant]
     Active Substance: PERGOLIDE
     Dates: end: 20200130
  4. MENESIT [Concomitant]
     Active Substance: CARBIDOPA\LEVODOPA
  5. AZILECT [Suspect]
     Active Substance: RASAGILINE MESYLATE
     Indication: PARKINSON^S DISEASE
     Dosage: 2 MILLIGRAM DAILY; QD
     Route: 048
     Dates: start: 20191210, end: 20200121
  6. AZILECT [Suspect]
     Active Substance: RASAGILINE MESYLATE
     Dosage: 1 MILLIGRAM DAILY; QD
     Route: 048
     Dates: start: 20200122, end: 20200127

REACTIONS (11)
  - Loss of consciousness [Recovering/Resolving]
  - Muscular weakness [Unknown]
  - Electrocardiogram ST segment elevation [Recovered/Resolved]
  - Blood pressure increased [Not Recovered/Not Resolved]
  - Orthostatic hypotension [Not Recovered/Not Resolved]
  - Vertigo [Unknown]
  - Peripheral coldness [Unknown]
  - Overdose [Unknown]
  - Product prescribing error [Unknown]
  - Dizziness [Recovering/Resolving]
  - Fall [Recovering/Resolving]

NARRATIVE: CASE EVENT DATE: 20191210
